FAERS Safety Report 13953790 (Version 1)
Quarter: 2017Q3

REPORT INFORMATION
  Report Type: Spontaneous
  Country: CA (occurrence: CA)
  Receive Date: 20170908
  Receipt Date: 20170908
  Transmission Date: 20171128
  Serious: No
  Sender: FDA-Public Use
  Company Number: None

PATIENT
  Age: 22 Year
  Sex: Male
  Weight: 121.5 kg

DRUGS (1)
  1. VARENICLINE [Suspect]
     Active Substance: VARENICLINE
     Indication: EX-TOBACCO USER
     Route: 048
     Dates: start: 20170907, end: 20170908

REACTIONS (2)
  - Eye disorder [None]
  - Hair colour changes [None]

NARRATIVE: CASE EVENT DATE: 20170908
